FAERS Safety Report 15532708 (Version 2)
Quarter: 2018Q4

REPORT INFORMATION
  Report Type: Spontaneous
  Country: CZ (occurrence: CZ)
  Receive Date: 20181019
  Receipt Date: 20181031
  Transmission Date: 20190205
  Serious: Yes (Life-Threatening, Other)
  Sender: FDA-Public Use
  Company Number: CZ-MYLANLABS-2018M1078391

PATIENT
  Age: 62 Year
  Sex: Male

DRUGS (6)
  1. CALCIUM GLUCONICUM                 /00060701/ [Suspect]
     Active Substance: CALCIUM GLUCONATE
     Indication: PREMEDICATION
     Dosage: UNK
  2. PALONOSETRON HOSPIRA [Suspect]
     Active Substance: PALONOSETRON HYDROCHLORIDE
     Indication: PROPHYLAXIS
     Dosage: UNK
     Dates: start: 20151103, end: 20151103
  3. CALCIUM GLUCONICUM                 /00060701/ [Suspect]
     Active Substance: CALCIUM GLUCONATE
     Indication: PROPHYLAXIS
     Dosage: UNK
     Dates: start: 20151103, end: 20151103
  4. DEXAMETHASONE. [Suspect]
     Active Substance: DEXAMETHASONE
     Indication: PROPHYLAXIS
     Dosage: UNK
     Dates: start: 20151103, end: 20151103
  5. DEXAMETHASONE. [Suspect]
     Active Substance: DEXAMETHASONE
     Indication: PREMEDICATION
     Dosage: UNK
  6. PALONOSETRON HOSPIRA [Suspect]
     Active Substance: PALONOSETRON HYDROCHLORIDE
     Indication: PREMEDICATION
     Dosage: UNK

REACTIONS (3)
  - Circulatory collapse [Recovered/Resolved]
  - Cardio-respiratory arrest [Recovered/Resolved]
  - Anaphylactic reaction [Unknown]

NARRATIVE: CASE EVENT DATE: 20151103
